FAERS Safety Report 7830757-9 (Version None)
Quarter: 2011Q4

REPORT INFORMATION
  Report Type: 
  Country: None (occurrence: None)
  Receive Date: 20111021
  Receipt Date: 20111012
  Transmission Date: 20120403
  Serious: Yes (Hospitalization)
  Sender: FDA-Public Use
  Company Number: US-GLAXOSMITHKLINE-A0845026A

PATIENT
  Age: 64 Year
  Sex: Female
  Weight: 127.3 kg

DRUGS (7)
  1. AVANDIA [Suspect]
     Indication: DIABETES MELLITUS
     Dosage: 4MG PER DAY
     Route: 048
     Dates: start: 20050113, end: 20061001
  2. NORVASC [Concomitant]
  3. ENALAPRIL MALEATE [Concomitant]
  4. BIPAP [Concomitant]
  5. AVANDARYL [Suspect]
     Indication: DIABETES MELLITUS
     Dosage: 1TAB PER DAY
     Route: 048
     Dates: start: 20070411
  6. PHENTERMINE [Concomitant]
     Route: 048
  7. LIPITOR [Concomitant]

REACTIONS (3)
  - CARDIAC FAILURE CONGESTIVE [None]
  - RESPIRATORY DISORDER [None]
  - PULMONARY HYPERTENSION [None]
